FAERS Safety Report 24178460 (Version 1)
Quarter: 2024Q3

REPORT INFORMATION
  Report Type: Spontaneous
  Country: US (occurrence: US)
  Receive Date: 20240806
  Receipt Date: 20240806
  Transmission Date: 20241017
  Serious: No
  Sender: ELI LILLY AND CO
  Company Number: US-ELI_LILLY_AND_COMPANY-US202407019208

PATIENT
  Age: 50 Year
  Sex: Female

DRUGS (5)
  1. TALTZ [Suspect]
     Active Substance: IXEKIZUMAB
     Indication: Psoriasis
     Dosage: 160 MG, SINGLE (LOADING DOSE)
     Route: 058
     Dates: start: 20240705
  2. TALTZ [Suspect]
     Active Substance: IXEKIZUMAB
     Dosage: 80 MG, OTHER (MAINTENANCE DOSE)
     Route: 058
     Dates: start: 20240716
  3. ZORYVE [Suspect]
     Active Substance: ROFLUMILAST
     Indication: Injection site swelling
     Dosage: UNK UNK, UNKNOWN
     Route: 065
  4. ZORYVE [Suspect]
     Active Substance: ROFLUMILAST
     Indication: Injection site erythema
  5. ZORYVE [Suspect]
     Active Substance: ROFLUMILAST
     Indication: Injection site warmth

REACTIONS (7)
  - Rash [Unknown]
  - Injection site erythema [Not Recovered/Not Resolved]
  - Injection site pruritus [Not Recovered/Not Resolved]
  - Injection site swelling [Not Recovered/Not Resolved]
  - Injection site induration [Not Recovered/Not Resolved]
  - Injection site warmth [Not Recovered/Not Resolved]
  - Therapeutic response delayed [Unknown]

NARRATIVE: CASE EVENT DATE: 20240727
